FAERS Safety Report 25555466 (Version 2)
Quarter: 2025Q3

REPORT INFORMATION
  Report Type: Report from Study
  Country: EU (occurrence: EU)
  Receive Date: 20250715
  Receipt Date: 20250926
  Transmission Date: 20251020
  Serious: Yes (Other)
  Sender: MYLAN
  Company Number: EU-GILEAD-2025-0717586

PATIENT
  Age: 42 Year
  Sex: Female

DRUGS (16)
  1. EMTRICITABINE\TENOFOVIR DISOPROXIL [Suspect]
     Active Substance: EMTRICITABINE\TENOFOVIR DISOPROXIL
     Indication: HIV infection
     Dates: start: 20231001, end: 20231005
  2. EMTRICITABINE\TENOFOVIR DISOPROXIL [Suspect]
     Active Substance: EMTRICITABINE\TENOFOVIR DISOPROXIL
     Route: 065
     Dates: start: 20231001, end: 20231005
  3. EMTRICITABINE\TENOFOVIR DISOPROXIL [Suspect]
     Active Substance: EMTRICITABINE\TENOFOVIR DISOPROXIL
     Route: 065
     Dates: start: 20231001, end: 20231005
  4. EMTRICITABINE\TENOFOVIR DISOPROXIL [Suspect]
     Active Substance: EMTRICITABINE\TENOFOVIR DISOPROXIL
     Dates: start: 20231001, end: 20231005
  5. BICTEGRAVIR\EMTRICITABINE\TENOFOVIR ALAFENAMIDE [Suspect]
     Active Substance: BICTEGRAVIR\EMTRICITABINE\TENOFOVIR ALAFENAMIDE
     Indication: HIV infection
     Dates: start: 20230620, end: 20230930
  6. BICTEGRAVIR\EMTRICITABINE\TENOFOVIR ALAFENAMIDE [Suspect]
     Active Substance: BICTEGRAVIR\EMTRICITABINE\TENOFOVIR ALAFENAMIDE
     Route: 065
     Dates: start: 20230620, end: 20230930
  7. BICTEGRAVIR\EMTRICITABINE\TENOFOVIR ALAFENAMIDE [Suspect]
     Active Substance: BICTEGRAVIR\EMTRICITABINE\TENOFOVIR ALAFENAMIDE
     Route: 065
     Dates: start: 20230620, end: 20230930
  8. BICTEGRAVIR\EMTRICITABINE\TENOFOVIR ALAFENAMIDE [Suspect]
     Active Substance: BICTEGRAVIR\EMTRICITABINE\TENOFOVIR ALAFENAMIDE
     Dates: start: 20230620, end: 20230930
  9. NORVIR [Suspect]
     Active Substance: RITONAVIR
     Indication: HIV infection
     Dates: start: 20231001, end: 20231005
  10. NORVIR [Suspect]
     Active Substance: RITONAVIR
     Route: 065
     Dates: start: 20231001, end: 20231005
  11. NORVIR [Suspect]
     Active Substance: RITONAVIR
     Route: 065
     Dates: start: 20231001, end: 20231005
  12. NORVIR [Suspect]
     Active Substance: RITONAVIR
     Dates: start: 20231001, end: 20231005
  13. ISENTRESS [Suspect]
     Active Substance: RALTEGRAVIR POTASSIUM
     Indication: HIV infection
     Dates: start: 20231001, end: 20231005
  14. ISENTRESS [Suspect]
     Active Substance: RALTEGRAVIR POTASSIUM
     Route: 065
     Dates: start: 20231001, end: 20231005
  15. ISENTRESS [Suspect]
     Active Substance: RALTEGRAVIR POTASSIUM
     Route: 065
     Dates: start: 20231001, end: 20231005
  16. ISENTRESS [Suspect]
     Active Substance: RALTEGRAVIR POTASSIUM
     Dates: start: 20231001, end: 20231005

REACTIONS (2)
  - Abortion induced [Recovered/Resolved]
  - Maternal exposure during pregnancy [Recovered/Resolved]

NARRATIVE: CASE EVENT DATE: 20231005
